FAERS Safety Report 8533155-8 (Version None)
Quarter: 2012Q3

REPORT INFORMATION
  Report Type: 
  Country: None (occurrence: None)
  Receive Date: 20120724
  Receipt Date: 20120713
  Transmission Date: 20120928
  Serious: Yes (Other)
  Sender: FDA-Public Use
  Company Number: JP-VERTEX PHARMACEUTICALS INC.-AE-2012-003530

PATIENT
  Age: 53 Year
  Sex: Male

DRUGS (17)
  1. REBETOL [Concomitant]
     Route: 048
     Dates: start: 20120509, end: 20120627
  2. REBETOL [Concomitant]
     Route: 048
     Dates: start: 20120412, end: 20120430
  3. CLARITIN REDITABS [Concomitant]
     Route: 048
  4. TELAVIC (TELAPREVIR) [Suspect]
     Indication: HEPATITIS C
     Route: 048
     Dates: start: 20120118, end: 20120120
  5. REBETOL [Concomitant]
     Indication: HEPATITIS C
     Route: 048
     Dates: start: 20120118, end: 20120212
  6. REBETOL [Concomitant]
     Route: 048
     Dates: start: 20120213, end: 20120219
  7. REBETOL [Concomitant]
     Route: 048
     Dates: start: 20120312, end: 20120411
  8. REBETOL [Concomitant]
     Route: 048
     Dates: start: 20120501, end: 20120508
  9. FEROTYM [Concomitant]
     Route: 048
  10. PEG-INTRON [Concomitant]
     Indication: HEPATITIS C
     Route: 058
     Dates: end: 20120627
  11. EPADEL S [Concomitant]
     Route: 048
  12. LIVALO [Concomitant]
     Route: 048
  13. TELAVIC (TELAPREVIR) [Suspect]
     Route: 048
     Dates: start: 20120123
  14. REBETOL [Concomitant]
     Route: 048
     Dates: start: 20120228, end: 20120306
  15. REBETOL [Concomitant]
     Route: 048
     Dates: start: 20120307, end: 20120311
  16. LIVALO [Concomitant]
     Route: 048
  17. REBETOL [Concomitant]
     Route: 048
     Dates: start: 20120220, end: 20120227

REACTIONS (4)
  - ANAEMIA [None]
  - PRURITUS [None]
  - RASH [None]
  - RENAL DISORDER [None]
